APPROVED DRUG PRODUCT: AMINOSYN II 3.5% IN DEXTROSE 5% IN PLASTIC CONTAINER
Active Ingredient: AMINO ACIDS; DEXTROSE
Strength: 3.5%;5GM/100ML
Dosage Form/Route: INJECTABLE;INJECTION
Application: N019681 | Product #002
Applicant: HOSPIRA WORLDWIDE, INC
Approved: Nov 1, 1988 | RLD: No | RS: No | Type: DISCN